FAERS Safety Report 24080781 (Version 1)
Quarter: 2024Q3

REPORT INFORMATION
  Report Type: Spontaneous
  Country: US (occurrence: US)
  Receive Date: 20240711
  Receipt Date: 20240711
  Transmission Date: 20241017
  Serious: Yes (Hospitalization, Other)
  Sender: DR REDDYS
  Company Number: US-E2BLSMVVAL-SPO/USA/24/0009948

PATIENT
  Sex: Female

DRUGS (7)
  1. TIZANIDINE [Suspect]
     Active Substance: TIZANIDINE
     Indication: Muscle spasticity
     Route: 065
  2. ATORVASTATIN [Suspect]
     Active Substance: ATORVASTATIN
     Indication: Blood cholesterol
     Route: 065
  3. GABAPENTIN [Suspect]
     Active Substance: GABAPENTIN
     Indication: Neuropathy peripheral
     Dates: start: 202403
  4. XELJANZ [Suspect]
     Active Substance: TOFACITINIB CITRATE
     Indication: Product used for unknown indication
     Dates: start: 202403
  5. BACLOFEN [Suspect]
     Active Substance: BACLOFEN
     Indication: Muscle spasticity
     Route: 065
  6. DIAZEPAM [Suspect]
     Active Substance: DIAZEPAM
     Indication: Muscle spasms
     Route: 065
  7. NORTRIPTYLINE [Suspect]
     Active Substance: NORTRIPTYLINE
     Indication: Sciatica
     Dosage: BEDTIME
     Route: 065
     Dates: start: 202403

REACTIONS (3)
  - Amnesia [Recovered/Resolved]
  - Loss of consciousness [Recovering/Resolving]
  - Hepatic enzyme increased [Recovering/Resolving]

NARRATIVE: CASE EVENT DATE: 20240601
